FAERS Safety Report 7372875-8 (Version None)
Quarter: 2011Q1

REPORT INFORMATION
  Report Type: 
  Country: None (occurrence: None)
  Receive Date: 20110314
  Receipt Date: 20110228
  Transmission Date: 20110831
  Serious: Yes (Other)
  Sender: FDA-Public Use
  Company Number: ACO_21961_2011

PATIENT
  Age: 44 Year
  Sex: Male
  Weight: 73.9 kg

DRUGS (6)
  1. CIALIS [Concomitant]
  2. LOTREL [Concomitant]
  3. MULTIVITAMINS (ASCORBIC ACID, ERGOCALCIFEROL, FOLIC ACID, NICOTINAMIDE [Concomitant]
  4. AVONEX [Concomitant]
  5. AMPYRA [Suspect]
     Indication: GAIT DISTURBANCE
     Dosage: 10 MG, BID, ORAL
     Route: 048
     Dates: start: 20100808, end: 20100901
  6. AMPYRA [Suspect]
     Indication: GAIT DISTURBANCE
     Dosage: 10 MG, BID, ORAL
     Route: 048
     Dates: start: 20100901, end: 20110301

REACTIONS (11)
  - FATIGUE [None]
  - IRRITABILITY [None]
  - DEHYDRATION [None]
  - MALAISE [None]
  - INAPPROPRIATE SCHEDULE OF DRUG ADMINISTRATION [None]
  - PANIC ATTACK [None]
  - DISORIENTATION [None]
  - AGITATION [None]
  - URINE KETONE BODY ABSENT [None]
  - MUSCLE SPASTICITY [None]
  - DIZZINESS [None]
